FAERS Safety Report 5648709-6 (Version None)
Quarter: 2008Q1

REPORT INFORMATION
  Report Type: 
  Country: None (occurrence: None)
  Receive Date: 20080303
  Receipt Date: 20080303
  Transmission Date: 20080703
  Serious: Yes (Other)
  Sender: FDA-Public Use
  Company Number: None

PATIENT
  Age: 46 Year
  Sex: Male
  Weight: 72.5755 kg

DRUGS (1)
  1. BACTRIM DS [Suspect]
     Indication: BACTERIAL INFECTION
     Dosage: 1 TAB 14 HOURS PO
     Route: 048
     Dates: start: 20080201, end: 20080202

REACTIONS (8)
  - DRY MOUTH [None]
  - DYSPNOEA [None]
  - HYPOAESTHESIA [None]
  - MUSCULAR WEAKNESS [None]
  - PRURITUS [None]
  - PYREXIA [None]
  - RASH [None]
  - TREMOR [None]
